FAERS Safety Report 22235687 (Version 1)
Quarter: 2023Q2

REPORT INFORMATION
  Report Type: Spontaneous
  Country: CA (occurrence: CA)
  Receive Date: 20230420
  Receipt Date: 20230420
  Transmission Date: 20230721
  Serious: Yes (Other)
  Sender: FDA-Public Use
  Company Number: CA-ABBVIE-4732719

PATIENT
  Sex: Female

DRUGS (1)
  1. HUMIRA [Suspect]
     Active Substance: ADALIMUMAB
     Indication: Crohn^s disease
     Route: 058

REACTIONS (5)
  - Abdominal pain lower [Unknown]
  - Diarrhoea [Unknown]
  - Adverse event [Unknown]
  - Decreased appetite [Unknown]
  - Crohn^s disease [Unknown]
